FAERS Safety Report 25938313 (Version 1)
Quarter: 2025Q4

REPORT INFORMATION
  Report Type: Spontaneous
  Country: US (occurrence: US)
  Receive Date: 20251018
  Receipt Date: 20251018
  Transmission Date: 20260117
  Serious: Yes (Other)
  Sender: ELI LILLY AND COMPANY
  Company Number: US-ELI_LILLY_AND_COMPANY-US202510019863

PATIENT
  Age: 59 Year

DRUGS (3)
  1. ERBITUX [Suspect]
     Active Substance: CETUXIMAB
     Indication: Colon cancer
     Dosage: 500 MG, WEEKLY (1/W)
     Route: 065
  2. ERBITUX [Suspect]
     Active Substance: CETUXIMAB
     Indication: Metastases to liver
  3. ERBITUX [Suspect]
     Active Substance: CETUXIMAB
     Indication: Lung neoplasm malignant

REACTIONS (1)
  - Malignant neoplasm progression [Unknown]
